FAERS Safety Report 25841099 (Version 1)
Quarter: 2025Q3

REPORT INFORMATION
  Report Type: Report from Study
  Country: EU (occurrence: EU)
  Receive Date: 20250924
  Receipt Date: 20250924
  Transmission Date: 20251021
  Serious: Yes (Other)
  Sender: BAYER HEALTHCARE PHARMACEUTICALS INC.
  Company Number: EU-BAYER-2025A125847

PATIENT
  Age: 32 Year
  Sex: Male

DRUGS (1)
  1. JIVI [Suspect]
     Active Substance: DAMOCTOCOG ALFA PEGOL
     Indication: Factor VIII deficiency

REACTIONS (4)
  - Intentional self-injury [Not Recovered/Not Resolved]
  - Haematoma [Not Recovered/Not Resolved]
  - Aggression [Not Recovered/Not Resolved]
  - Bite [Not Recovered/Not Resolved]

NARRATIVE: CASE EVENT DATE: 20250918
